FAERS Safety Report 25052045 (Version 1)
Quarter: 2025Q1

REPORT INFORMATION
  Report Type: Spontaneous
  Country: US (occurrence: US)
  Receive Date: 20250307
  Receipt Date: 20250307
  Transmission Date: 20250408
  Serious: No
  Sender: SAMSUNG BIOEPIS
  Company Number: US-SAMSUNG BIOEPIS-SB-2024-32178

PATIENT
  Age: 56 Year
  Sex: Female

DRUGS (2)
  1. HADLIMA [Suspect]
     Active Substance: ADALIMUMAB-BWWD
     Indication: Rheumatoid arthritis
     Dosage: 40 MG/ 0.4 ML; 40 MG/ 0.8 ML;
     Route: 058
  2. PREDNISONE [Concomitant]
     Active Substance: PREDNISONE
     Indication: Rheumatoid arthritis

REACTIONS (4)
  - Pain [Recovered/Resolved]
  - Dizziness [Recovered/Resolved]
  - Fibromyalgia [Recovered/Resolved]
  - Device malfunction [Recovered/Resolved]

NARRATIVE: CASE EVENT DATE: 20241019
